FAERS Safety Report 9604281 (Version 2)
Quarter: 2013Q4

REPORT INFORMATION
  Report Type: Report from Study
  Country: JP (occurrence: JP)
  Receive Date: 20131008
  Receipt Date: 20131129
  Transmission Date: 20140711
  Serious: Yes (Hospitalization, Other)
  Sender: FDA-Public Use
  Company Number: PHHY2013JP111925

PATIENT
  Age: 17 Year
  Sex: Female
  Weight: 50 kg

DRUGS (5)
  1. FTY 720 [Suspect]
     Indication: MULTIPLE SCLEROSIS
     Dosage: 0.5 MG, QD
     Route: 048
     Dates: start: 20130516, end: 20130605
  2. SOLU-MEDROL [Concomitant]
     Indication: MULTIPLE SCLEROSIS
     Dosage: 1000 MG, UNK
     Dates: start: 20120516, end: 20130515
  3. PREDONINE [Concomitant]
     Indication: MULTIPLE SCLEROSIS
     Dosage: 5 MG, UNK
     Route: 048
     Dates: start: 20130516, end: 20130605
  4. METHYCOBAL [Concomitant]
     Indication: OPTIC NEURITIS
     Dosage: 1500 UG, UNK
     Route: 048
     Dates: start: 20120615
  5. COVERSYL [Concomitant]
     Indication: OPTIC NEURITIS
     Dosage: 300 MG, UNK
     Route: 048
     Dates: start: 20120615

REACTIONS (3)
  - Optic neuritis [Recovered/Resolved]
  - Blood pressure decreased [Unknown]
  - Lymphocyte count decreased [Unknown]
